FAERS Safety Report 13292023 (Version 2)
Quarter: 2017Q4

REPORT INFORMATION
  Report Type: Spontaneous
  Country: CH (occurrence: AT)
  Receive Date: 20170303
  Receipt Date: 20171102
  Transmission Date: 20180320
  Serious: Yes (Death, Disabling)
  Sender: FDA-Public Use
  Company Number: CH-LPDUSPRD-20170171

PATIENT
  Age: 63 Year
  Sex: Female
  Weight: 49.5 kg

DRUGS (1)
  1. FERINJECT [Suspect]
     Active Substance: FERRIC CARBOXYMALTOSE
     Dosage: 1 GM,12 IN 2 MONTHS
     Route: 041
     Dates: start: 20100801, end: 20161001

REACTIONS (3)
  - Death [Fatal]
  - Hypophosphataemia [Recovered/Resolved with Sequelae]
  - Pain in extremity [Recovered/Resolved with Sequelae]

NARRATIVE: CASE EVENT DATE: 20100803
